FAERS Safety Report 12685422 (Version 1)
Quarter: 2016Q3

REPORT INFORMATION
  Report Type: Spontaneous
  Country: US (occurrence: US)
  Receive Date: 20160825
  Receipt Date: 20160825
  Transmission Date: 20161109
  Serious: No
  Sender: FDA-Public Use
  Company Number: US-TEVA-681136ACC

PATIENT
  Age: 29 Year
  Sex: Female
  Weight: 63.56 kg

DRUGS (2)
  1. PLAN B ONE-STEP [Suspect]
     Active Substance: LEVONORGESTREL
     Dates: start: 20160714, end: 20160714
  2. PLAN B ONE-STEP [Suspect]
     Active Substance: LEVONORGESTREL
     Indication: POST COITAL CONTRACEPTION
     Dates: start: 20160711, end: 20160711

REACTIONS (5)
  - Nausea [Not Recovered/Not Resolved]
  - Vaginal haemorrhage [Not Recovered/Not Resolved]
  - Vaginal discharge [Not Recovered/Not Resolved]
  - Fatigue [Not Recovered/Not Resolved]
  - Breast tenderness [Not Recovered/Not Resolved]

NARRATIVE: CASE EVENT DATE: 20160720
